FAERS Safety Report 15081139 (Version 2)
Quarter: 2018Q3

REPORT INFORMATION
  Report Type: Spontaneous
  Country: US (occurrence: US)
  Receive Date: 20180628
  Receipt Date: 20180711
  Transmission Date: 20181010
  Serious: Yes (Other)
  Sender: FDA-Public Use
  Company Number: US-ASTRAZENECA-2018SE81823

PATIENT
  Sex: Male

DRUGS (1)
  1. FASENRA [Suspect]
     Active Substance: BENRALIZUMAB
     Dosage: UNKNOWN
     Route: 058

REACTIONS (6)
  - Lymphadenopathy [Unknown]
  - Jarisch-Herxheimer reaction [Unknown]
  - Fatigue [Unknown]
  - Influenza [Unknown]
  - Lyme disease [Unknown]
  - Pain [Unknown]

NARRATIVE: CASE EVENT DATE: 20180531
